FAERS Safety Report 15462447 (Version 3)
Quarter: 2018Q4

REPORT INFORMATION
  Report Type: Spontaneous
  Country: US (occurrence: US)
  Receive Date: 20181004
  Receipt Date: 20181004
  Transmission Date: 20190204
  Serious: No
  Sender: FDA-Public Use
  Company Number: US-LUPIN PHARMACEUTICALS INC.-2018-04774

PATIENT
  Age: 76 Year
  Sex: Female
  Weight: 68.93 kg

DRUGS (1)
  1. FYAVOLV [Suspect]
     Active Substance: ETHINYL ESTRADIOL\NORETHINDRONE ACETATE
     Indication: AUTONOMIC NERVOUS SYSTEM IMBALANCE
     Dosage: 1 DF, QD
     Route: 048
     Dates: start: 20180325

REACTIONS (2)
  - Weight increased [Not Recovered/Not Resolved]
  - Abdominal distension [Not Recovered/Not Resolved]

NARRATIVE: CASE EVENT DATE: 20180525
